FAERS Safety Report 12891923 (Version 2)
Quarter: 2016Q4

REPORT INFORMATION
  Report Type: Spontaneous
  Country: US (occurrence: US)
  Receive Date: 20161028
  Receipt Date: 20161109
  Transmission Date: 20170207
  Serious: No
  Sender: FDA-Public Use
  Company Number: US-009507513-1610USA011802

PATIENT
  Sex: Female
  Weight: 76.5 kg

DRUGS (1)
  1. NEXPLANON [Suspect]
     Active Substance: ETONOGESTREL
     Indication: CONTRACEPTION
     Dosage: UNK
     Route: 059
     Dates: start: 20160912, end: 2016

REACTIONS (3)
  - Nausea [Unknown]
  - Maternal exposure during pregnancy [Unknown]
  - Vomiting [Unknown]

NARRATIVE: CASE EVENT DATE: 2016
